FAERS Safety Report 16028096 (Version 2)
Quarter: 2019Q2

REPORT INFORMATION
  Report Type: Report from Study
  Country: TR (occurrence: TR)
  Receive Date: 20190304
  Receipt Date: 20190508
  Transmission Date: 20190711
  Serious: Yes (Hospitalization)
  Sender: FDA-Public Use
  Company Number: TR-ROCHE-2206897

PATIENT
  Age: 70 Year
  Sex: Female
  Weight: 58 kg

DRUGS (48)
  1. CARBOPLATIN. [Suspect]
     Active Substance: CARBOPLATIN
     Indication: OVARIAN CANCER
     Dosage: DOSE TO ACHIEVE A TARGET AREA UNDER THE CURVE (AUC) OF 6 (MG/ML*MIN) ON DAY 1 OF EACH 21-DAY CYCLE F
     Route: 042
     Dates: start: 20180911
  2. KYTRIL [Concomitant]
     Active Substance: GRANISETRON HYDROCHLORIDE
     Route: 065
     Dates: start: 20181025, end: 20181025
  3. NEUPOGEN [Concomitant]
     Active Substance: FILGRASTIM
     Route: 065
     Dates: start: 20181217, end: 20181219
  4. DEKORT [DEXAMETHASONE] [Concomitant]
     Indication: PREMEDICATION
     Route: 042
     Dates: start: 20181005, end: 20181005
  5. ULCURAN [Concomitant]
     Active Substance: RANITIDINE HYDROCHLORIDE
     Route: 065
     Dates: start: 20181205, end: 20181205
  6. NEUPOGEN [Concomitant]
     Active Substance: FILGRASTIM
     Route: 065
     Dates: start: 20181010, end: 20181010
  7. NEUPOGEN [Concomitant]
     Active Substance: FILGRASTIM
     Indication: FEBRILE NEUTROPENIA
     Route: 065
     Dates: start: 20180919, end: 20180920
  8. PERFALGAN [Concomitant]
     Active Substance: ACETAMINOPHEN
     Route: 065
     Dates: start: 20181025, end: 20181025
  9. PERFALGAN [Concomitant]
     Active Substance: ACETAMINOPHEN
     Route: 065
     Dates: start: 20190206, end: 20190206
  10. PHENIRAMINE [Concomitant]
     Active Substance: PHENIRAMINE
     Route: 065
     Dates: start: 20181025, end: 20181025
  11. PHENIRAMINE [Concomitant]
     Active Substance: PHENIRAMINE
     Route: 065
     Dates: start: 20181205, end: 20181205
  12. ZOMETA [Concomitant]
     Active Substance: ZOLEDRONIC ACID
     Route: 065
     Dates: start: 20181025, end: 20181025
  13. BEVACIZUMAB. [Suspect]
     Active Substance: BEVACIZUMAB
     Indication: OVARIAN CANCER
     Dosage: DATE OF MOST RECENT DOSE OF BEVACIZUMAB 05/DEC/2018: 900MG?DATE OF MOST RECENT DOSE OF BEVACIZUMAB 0
     Route: 042
     Dates: start: 20181005
  14. ALOXI [Concomitant]
     Active Substance: PALONOSETRON HYDROCHLORIDE
     Route: 065
     Dates: start: 20181115, end: 20181115
  15. KYTRIL [Concomitant]
     Active Substance: GRANISETRON HYDROCHLORIDE
     Route: 065
     Dates: start: 20181226, end: 20181226
  16. NEUPOGEN [Concomitant]
     Active Substance: FILGRASTIM
     Route: 065
     Dates: start: 20181106, end: 20181107
  17. PERFALGAN [Concomitant]
     Active Substance: ACETAMINOPHEN
     Route: 065
     Dates: start: 20181205, end: 20181205
  18. DEKORT [DEXAMETHASONE] [Concomitant]
     Route: 042
     Dates: start: 20181115, end: 20181115
  19. DEKORT [DEXAMETHASONE] [Concomitant]
     Route: 042
     Dates: start: 20181205, end: 20181205
  20. ULCURAN [Concomitant]
     Active Substance: RANITIDINE HYDROCHLORIDE
     Route: 065
     Dates: start: 20181115, end: 20181115
  21. ALOXI [Concomitant]
     Active Substance: PALONOSETRON HYDROCHLORIDE
     Indication: PREMEDICATION
     Route: 065
     Dates: start: 20181005, end: 20181005
  22. PHENIRAMINE [Concomitant]
     Active Substance: PHENIRAMINE
     Indication: PREMEDICATION
     Route: 065
     Dates: start: 20181005, end: 20181005
  23. ULCURAN [Concomitant]
     Active Substance: RANITIDINE HYDROCHLORIDE
     Route: 065
     Dates: start: 20181226, end: 20181226
  24. ZOMETA [Concomitant]
     Active Substance: ZOLEDRONIC ACID
     Indication: HYPERCALCAEMIA
     Route: 065
     Dates: start: 20181005, end: 20181005
  25. ZOMETA [Concomitant]
     Active Substance: ZOLEDRONIC ACID
     Route: 065
     Dates: start: 20181226, end: 20181226
  26. ATEZOLIZUMAB. [Suspect]
     Active Substance: ATEZOLIZUMAB
     Indication: OVARIAN CANCER
     Dosage: DATE OF MOST RECENT DOSE OF ATEZOLIZUMAB PRIOR TO AE ONSET 05/OCT/2018: 1200MG?DATE OF MOST RECENT D
     Route: 042
     Dates: start: 20180911
  27. PERFALGAN [Concomitant]
     Active Substance: ACETAMINOPHEN
     Indication: HYPERCALCAEMIA
     Route: 065
     Dates: start: 20181005, end: 20181005
  28. PERFALGAN [Concomitant]
     Active Substance: ACETAMINOPHEN
     Route: 065
     Dates: start: 20181115, end: 20181115
  29. DEKORT [DEXAMETHASONE] [Concomitant]
     Route: 042
     Dates: start: 20181025, end: 20181025
  30. PHENIRAMINE [Concomitant]
     Active Substance: PHENIRAMINE
     Route: 065
     Dates: start: 20181226, end: 20181226
  31. ULCURAN [Concomitant]
     Active Substance: RANITIDINE HYDROCHLORIDE
     Route: 065
     Dates: start: 20181025, end: 20181025
  32. ZOMETA [Concomitant]
     Active Substance: ZOLEDRONIC ACID
     Route: 065
     Dates: start: 20181205, end: 20181205
  33. ZOMETA [Concomitant]
     Active Substance: ZOLEDRONIC ACID
     Route: 065
     Dates: start: 20190116, end: 20190116
  34. ZOMETA [Concomitant]
     Active Substance: ZOLEDRONIC ACID
     Route: 065
     Dates: start: 20190206, end: 20190206
  35. MINOSET [Concomitant]
     Active Substance: ACETAMINOPHEN
     Indication: PYREXIA
     Route: 065
     Dates: start: 20180912, end: 20180914
  36. DUPHALAC [Concomitant]
     Active Substance: LACTULOSE
     Indication: CONSTIPATION
     Route: 065
     Dates: start: 20180927, end: 20181024
  37. NEUPOGEN [Concomitant]
     Active Substance: FILGRASTIM
     Route: 065
     Dates: start: 20190107, end: 20190108
  38. PERFALGAN [Concomitant]
     Active Substance: ACETAMINOPHEN
     Route: 065
     Dates: start: 20181226, end: 20181226
  39. ULCURAN [Concomitant]
     Active Substance: RANITIDINE HYDROCHLORIDE
     Indication: PREMEDICATION
     Route: 065
     Dates: start: 20181005, end: 20181005
  40. PACLITAXEL. [Suspect]
     Active Substance: PACLITAXEL
     Indication: OVARIAN CANCER
     Dosage: DOSE OF LAST PACLITAXEL ADMINISTERED PRIOR TO AE ONSET ON 05/OCT/2018: 273MG?DOSE OF LAST PACLITAXEL
     Route: 042
     Dates: start: 20180911
  41. BARACLUDE [Concomitant]
     Active Substance: ENTECAVIR
     Indication: HEPATITIS B
     Route: 065
     Dates: start: 20180908
  42. KYTRIL [Concomitant]
     Active Substance: GRANISETRON HYDROCHLORIDE
     Indication: NAUSEA
     Dosage: RECEIVED ON 05/DEC/2018
     Route: 065
     Dates: start: 20180912, end: 20190320
  43. PERFALGAN [Concomitant]
     Active Substance: ACETAMINOPHEN
     Indication: LOWER GASTROINTESTINAL HAEMORRHAGE
     Route: 065
     Dates: start: 20181008, end: 20181008
  44. PERFALGAN [Concomitant]
     Active Substance: ACETAMINOPHEN
     Route: 065
     Dates: start: 20190116, end: 20190116
  45. DEKORT [DEXAMETHASONE] [Concomitant]
     Route: 042
     Dates: start: 20181226, end: 20181226
  46. PHENIRAMINE [Concomitant]
     Active Substance: PHENIRAMINE
     Route: 065
     Dates: start: 20181115, end: 20181115
  47. ZOMETA [Concomitant]
     Active Substance: ZOLEDRONIC ACID
     Route: 065
     Dates: start: 20181115, end: 20181115
  48. KALINOR [CITRIC ACID;POTASSIUM BICARBONATE;POTASSIUM CITRATE] [Concomitant]
     Active Substance: CITRIC ACID MONOHYDRATE\POTASSIUM BICARBONATE\POTASSIUM CITRATE
     Route: 065
     Dates: start: 20190320, end: 20190411

REACTIONS (2)
  - Hyperparathyroidism [Recovered/Resolved]
  - Hypertension [Recovering/Resolving]

NARRATIVE: CASE EVENT DATE: 20181014
